FAERS Safety Report 26090595 (Version 1)
Quarter: 2025Q4

REPORT INFORMATION
  Report Type: Spontaneous
  Country: US (occurrence: US)
  Receive Date: 20251126
  Receipt Date: 20251126
  Transmission Date: 20260117
  Serious: Yes (Other)
  Sender: COOPERSURGICAL
  Company Number: US-COOPERSURGICAL, INC.-2025CPS008155

PATIENT
  Age: 26 Year
  Sex: Female
  Weight: 62.585 kg

DRUGS (1)
  1. PARAGARD T 380A [Suspect]
     Active Substance: COPPER
     Indication: Contraception
     Dosage: UNK
     Route: 015
     Dates: start: 20130306, end: 20160504

REACTIONS (15)
  - Reproductive complication associated with device [Recovered/Resolved]
  - Infertility [Recovered/Resolved]
  - Abortion spontaneous [Recovered/Resolved]
  - Device breakage [Recovered/Resolved]
  - Foreign body in reproductive tract [Recovered/Resolved]
  - Complication of device removal [Recovered/Resolved]
  - Embedded device [Recovered/Resolved]
  - Emotional distress [Not Recovered/Not Resolved]
  - Uterine pain [Unknown]
  - Post procedural haemorrhage [Unknown]
  - Menstruation irregular [Unknown]
  - Dysmenorrhoea [Not Recovered/Not Resolved]
  - Unevaluable event [Unknown]
  - Abdominal pain [Unknown]
  - Pelvic pain [Not Recovered/Not Resolved]

NARRATIVE: CASE EVENT DATE: 20130306
